FAERS Safety Report 7508637-8 (Version None)
Quarter: 2011Q2

REPORT INFORMATION
  Report Type: 
  Country: None (occurrence: None)
  Receive Date: 20110527
  Receipt Date: 20100629
  Transmission Date: 20111010
  Serious: No
  Sender: FDA-Public Use
  Company Number: A0853366A

PATIENT
  Age: 67 Year
  Sex: Female

DRUGS (1)
  1. VENTOLIN [Suspect]
     Indication: CHRONIC OBSTRUCTIVE PULMONARY DISEASE

REACTIONS (3)
  - INSOMNIA [None]
  - LUNG DISORDER [None]
  - POOR QUALITY SLEEP [None]
